FAERS Safety Report 16121074 (Version 1)
Quarter: 2019Q1

REPORT INFORMATION
  Report Type: Spontaneous
  Country: US (occurrence: US)
  Receive Date: 20190327
  Receipt Date: 20190327
  Transmission Date: 20190418
  Serious: No
  Sender: FDA-Public Use
  Company Number: US-SHIRE-US201908922

PATIENT
  Sex: Female

DRUGS (1)
  1. VYVANSE [Suspect]
     Active Substance: LISDEXAMFETAMINE DIMESYLATE
     Indication: PRODUCT USED FOR UNKNOWN INDICATION
     Dosage: 30 MILLIGRAM (ONE 10 MG AND ONE 20 MG), 1X/DAY:QD
     Route: 065

REACTIONS (4)
  - Poor quality product administered [Unknown]
  - Product physical issue [Unknown]
  - Off label use [Unknown]
  - Underdose [Unknown]
